FAERS Safety Report 9072888 (Version 1)
Quarter: 2013Q1

REPORT INFORMATION
  Report Type: Report from Study
  Country: US (occurrence: US)
  Receive Date: 20130129
  Receipt Date: 20130129
  Transmission Date: 20140127
  Serious: No
  Sender: FDA-Public Use
  Company Number: US-ABBOTT-12P-163-0920505-00

PATIENT
  Age: 41 Year
  Sex: Female

DRUGS (4)
  1. HUMIRA 40 MG/0.8 ML PEN [Suspect]
     Indication: RHEUMATOID ARTHRITIS
     Dates: start: 20120329
  2. METHOTREXATE [Concomitant]
     Indication: PRODUCT USED FOR UNKNOWN INDICATION
     Dosage: 2.5MG, 6 TABS WEEKLY
  3. FOLIC ACID [Concomitant]
     Indication: ANAEMIA
  4. IRON PILLS [Concomitant]
     Indication: ANAEMIA

REACTIONS (2)
  - Nausea [Recovering/Resolving]
  - Vomiting [Unknown]
